FAERS Safety Report 6754018-4 (Version None)
Quarter: 2010Q2

REPORT INFORMATION
  Report Type: 
  Country: None (occurrence: None)
  Receive Date: 20100603
  Receipt Date: 20100528
  Transmission Date: 20101027
  Serious: Yes (Other)
  Sender: FDA-Public Use
  Company Number: B0657752A

PATIENT
  Age: 63 Year
  Sex: Female

DRUGS (1)
  1. AUGMENTIN '125' [Suspect]
     Route: 048
     Dates: start: 20100208, end: 20100216

REACTIONS (2)
  - CONDITION AGGRAVATED [None]
  - HEPATOCELLULAR INJURY [None]
